FAERS Safety Report 10280416 (Version 3)
Quarter: 2014Q3

REPORT INFORMATION
  Report Type: Spontaneous
  Country: JP (occurrence: JP)
  Receive Date: 20140707
  Receipt Date: 20140714
  Transmission Date: 20150326
  Serious: Yes (Hospitalization)
  Sender: FDA-Public Use
  Company Number: JP-PFIZER INC-2014149254

PATIENT
  Age: 19 Year
  Sex: Male
  Weight: 56.3 kg

DRUGS (3)
  1. BROTIZOLAM [Concomitant]
     Active Substance: BROTIZOLAM
     Indication: INSOMNIA
     Dosage: 0.25 MG, 1X/DAY
     Dates: start: 20140317, end: 20140612
  2. JZOLOFT [Suspect]
     Active Substance: SERTRALINE HYDROCHLORIDE
     Indication: DEPRESSION
     Dosage: 25 MG TO 50 MG, 1X/DAY
     Route: 048
     Dates: start: 20140314, end: 20140327
  3. JZOLOFT [Suspect]
     Active Substance: SERTRALINE HYDROCHLORIDE
     Dosage: 25 MG, 1X/DAY
     Route: 048
     Dates: start: 20140529, end: 20140612

REACTIONS (2)
  - Overdose [Unknown]
  - Suicide attempt [Recovering/Resolving]

NARRATIVE: CASE EVENT DATE: 20140327
